FAERS Safety Report 6206155-0 (Version None)
Quarter: 2009Q2

REPORT INFORMATION
  Report Type: 
  Country: None (occurrence: None)
  Receive Date: 20090528
  Receipt Date: 20080513
  Transmission Date: 20091009
  Serious: No
  Sender: FDA-Public Use
  Company Number: US-KINGPHARMUSA00001-K200800566

PATIENT
  Age: 66 Year
  Sex: Female

DRUGS (5)
  1. AVINZA [Suspect]
     Indication: PAIN
     Dosage: 30 MG, SINGLE DOSE
     Route: 048
     Dates: start: 20080401
  2. MORPHINE SULFATE [Concomitant]
     Indication: BREAKTHROUGH PAIN
     Route: 048
  3. PLAVIX [Concomitant]
     Indication: HYPERTENSION
     Route: 048
  4. NEURONTIN [Concomitant]
     Indication: CONVULSION
     Route: 048
  5. SONATA [Concomitant]
     Indication: INSOMNIA
     Dosage: UNK, UNK
     Route: 048

REACTIONS (1)
  - RASH GENERALISED [None]
